FAERS Safety Report 9508908 (Version 2)
Quarter: 2013Q3

REPORT INFORMATION
  Report Type: Spontaneous
  Country: US (occurrence: US)
  Receive Date: 20130909
  Receipt Date: 20130909
  Transmission Date: 20140515
  Serious: No
  Sender: FDA-Public Use
  Company Number: US-BRISTOL-MYERS SQUIBB COMPANY-17277906

PATIENT
  Age: 6 Year
  Sex: Male
  Weight: 42 kg

DRUGS (3)
  1. ABILIFY ORAL SOLUTION 1 MG/ML [Suspect]
     Indication: AGITATION
     Dosage: ORAL SUSPENSION
     Route: 048
  2. CRESTOR [Suspect]
     Indication: DISTURBANCE IN ATTENTION
     Route: 048
  3. CRESTOR [Suspect]
     Indication: PSYCHOMOTOR HYPERACTIVITY
     Route: 048

REACTIONS (3)
  - Drug ineffective [Unknown]
  - Dysgeusia [Unknown]
  - Drug dose omission [Unknown]
